FAERS Safety Report 20613549 (Version 3)
Quarter: 2022Q2

REPORT INFORMATION
  Report Type: Report from Study
  Country: CA (occurrence: CA)
  Receive Date: 20220319
  Receipt Date: 20220408
  Transmission Date: 20220721
  Serious: Yes (Hospitalization, Other)
  Sender: FDA-Public Use
  Company Number: CA-ABBVIE-22K-028-4317701-00

PATIENT
  Age: 67 Year
  Sex: Male

DRUGS (3)
  1. SKYRIZI [Suspect]
     Active Substance: RISANKIZUMAB-RZAA
     Indication: Psoriasis
     Dosage: WEEK 0
     Route: 058
     Dates: start: 20210830
  2. SKYRIZI [Suspect]
     Active Substance: RISANKIZUMAB-RZAA
     Dosage: WEEK 4
     Route: 058
  3. SKYRIZI [Suspect]
     Active Substance: RISANKIZUMAB-RZAA
     Dosage: ON WEEK 12
     Route: 058

REACTIONS (6)
  - Fall [Unknown]
  - Upper gastrointestinal haemorrhage [Recovered/Resolved]
  - Pancreatitis chronic [Recovered/Resolved]
  - Liver disorder [Unknown]
  - Oesophagitis [Recovered/Resolved]
  - Non-alcoholic steatohepatitis [Recovered/Resolved]

NARRATIVE: CASE EVENT DATE: 20220201
